FAERS Safety Report 4799806-9 (Version None)
Quarter: 2005Q4

REPORT INFORMATION
  Report Type: 
  Country: None (occurrence: None)
  Receive Date: 20051015
  Receipt Date: 20051006
  Transmission Date: 20060501
  Serious: Yes (Death, Hospitalization, Other)
  Sender: FDA-Public Use
  Company Number: US-ABBOTT-05P-163-0313005-00

PATIENT
  Sex: Male
  Weight: 81.72 kg

DRUGS (8)
  1. HUMIRA [Suspect]
     Indication: RHEUMATOID ARTHRITIS
     Route: 058
     Dates: start: 20040301, end: 20050701
  2. PREDNISONE [Concomitant]
     Indication: RHEUMATOID ARTHRITIS
  3. SEREVENT [Concomitant]
     Indication: CHRONIC OBSTRUCTIVE PULMONARY DISEASE
     Route: 055
  4. COMBIVENT [Concomitant]
     Indication: CHRONIC OBSTRUCTIVE PULMONARY DISEASE
     Route: 055
  5. ADVAIR INHALER [Concomitant]
     Indication: CHRONIC OBSTRUCTIVE PULMONARY DISEASE
     Route: 055
  6. ALENDRONATE SODIUM [Concomitant]
     Indication: OSTEOPOROSIS PROPHYLAXIS
  7. ERGOCALCIFEROL [Concomitant]
     Indication: OSTEOPOROSIS PROPHYLAXIS
  8. BACTRIM [Concomitant]
     Indication: IMMUNOSUPPRESSION
     Route: 048
     Dates: start: 20050201

REACTIONS (8)
  - ASPERGILLOSIS [None]
  - CARDIAC DISORDER [None]
  - COUGH [None]
  - NASOPHARYNGITIS [None]
  - PULMONARY EMBOLISM [None]
  - PULMONARY MASS [None]
  - RESPIRATORY TRACT INFECTION FUNGAL [None]
  - SINUSITIS [None]
